FAERS Safety Report 6184229-0 (Version None)
Quarter: 2009Q2

REPORT INFORMATION
  Report Type: 
  Country: None (occurrence: None)
  Receive Date: 20090508
  Receipt Date: 20090428
  Transmission Date: 20091009
  Serious: Yes (Hospitalization, Other)
  Sender: FDA-Public Use
  Company Number: PHHY2009BR16458

PATIENT
  Age: 43 Year
  Sex: Female
  Weight: 63 kg

DRUGS (3)
  1. FORASEQ [Suspect]
     Indication: BRONCHITIS
     Dosage: TWO INHALATIONS DAILY (MORNING AND NIGHT)
     Dates: start: 20010101
  2. EUTHYROX [Concomitant]
     Indication: THYROID DISORDER
     Dosage: 125 UG, 1 TABLET DAILY
     Route: 048
     Dates: start: 20081101, end: 20090301
  3. EUTHYROX [Concomitant]
     Dosage: 150MCG,ONE TABLET DAILY
     Route: 048
     Dates: start: 20090301

REACTIONS (9)
  - BLOOD CALCIUM DECREASED [None]
  - DIZZINESS [None]
  - DYSPNOEA [None]
  - FORMICATION [None]
  - HYPERTENSION [None]
  - NASOPHARYNGITIS [None]
  - TACHYCARDIA [None]
  - THYROID OPERATION [None]
  - TREMOR [None]
